FAERS Safety Report 10043342 (Version 1)
Quarter: 2014Q1

REPORT INFORMATION
  Report Type: Spontaneous
  Country: DE (occurrence: None)
  Receive Date: 20140326
  Receipt Date: 20140326
  Transmission Date: 20141002
  Serious: Yes (Hospitalization, Congenital Anomaly, Other)
  Sender: FDA-Public Use
  Company Number: AUR-APL-2014-03415

PATIENT
  Age: 1 Day
  Sex: Male
  Weight: 4.26 kg

DRUGS (5)
  1. SERTRALINE (SERTRALINE) [Suspect]
     Indication: ANXIETY DISORDER
     Route: 064
     Dates: start: 20120120, end: 20121015
  2. OPIPRAMOL [Suspect]
     Indication: DEPRESSION
     Route: 064
     Dates: start: 20120120
  3. ZOPICLONE (ZOPICLONE) [Suspect]
     Indication: SLEEP DISORDER
     Route: 064
     Dates: start: 20120120
  4. CENTRUM MATERNA (CENTRUM / 00554501/ ) [Concomitant]
  5. NASEMTROPFEN K (XYLOMETAZOLINE HYDROCHLORIDE) [Concomitant]

REACTIONS (5)
  - Foetal macrosomia [None]
  - Caesarean section [None]
  - Neonatal respiratory distress syndrome [None]
  - Kidney duplex [None]
  - Maternal drugs affecting foetus [None]
